FAERS Safety Report 4364292-X (Version None)
Quarter: 2004Q2

REPORT INFORMATION
  Report Type: 
  Country: None (occurrence: None)
  Receive Date: 20040525
  Receipt Date: 20040512
  Transmission Date: 20050107
  Serious: Yes (Hospitalization)
  Sender: FDA-Public Use
  Company Number: PHBS2004JP06502

PATIENT
  Age: 41 Year
  Sex: Female

DRUGS (4)
  1. CARBAMAZEPINE [Suspect]
     Indication: EPILEPSY
     Route: 048
  2. PHENYTOIN [Suspect]
     Indication: EPILEPSY
     Route: 065
  3. CLONAZEPAM [Suspect]
     Indication: EPILEPSY
     Route: 065
  4. VALPROATE SODIUM [Suspect]
     Indication: EPILEPSY
     Route: 065

REACTIONS (4)
  - ASCITES [None]
  - DIARRHOEA [None]
  - EOSINOPHIL COUNT INCREASED [None]
  - GASTROENTERITIS EOSINOPHILIC [None]
